FAERS Safety Report 7808377-1 (Version None)
Quarter: 2011Q4

REPORT INFORMATION
  Report Type: 
  Country: None (occurrence: None)
  Receive Date: 20111011
  Receipt Date: 20111011
  Transmission Date: 20120403
  Serious: Yes (Hospitalization, Other)
  Sender: FDA-Public Use
  Company Number: None

PATIENT
  Sex: Male
  Weight: 89.3586 kg

DRUGS (1)
  1. ENBREL [Suspect]
     Dosage: 50MG WEEKLY SQ
     Route: 058
     Dates: start: 20110501, end: 20110901

REACTIONS (1)
  - UNEVALUABLE EVENT [None]
